FAERS Safety Report 21351871 (Version 1)
Quarter: 2022Q3

REPORT INFORMATION
  Report Type: Spontaneous
  Country: US (occurrence: None)
  Receive Date: 20220917
  Receipt Date: 20220917
  Transmission Date: 20221026
  Serious: Yes (Life-Threatening)
  Sender: FDA-Public Use
  Company Number: None

PATIENT
  Age: 44 Year
  Sex: Male
  Weight: 80 kg

DRUGS (1)
  1. VANCOMYCIN [Suspect]
     Active Substance: VANCOMYCIN
     Indication: Cellulitis
     Route: 042
     Dates: start: 20220426, end: 20220426

REACTIONS (3)
  - Hypersensitivity [None]
  - Resuscitation [None]
  - Anaphylactic reaction [None]

NARRATIVE: CASE EVENT DATE: 20220426
